FAERS Safety Report 4569205-3 (Version None)
Quarter: 2005Q1

REPORT INFORMATION
  Report Type: 
  Country: None (occurrence: None)
  Receive Date: 20050201
  Receipt Date: 20050127
  Transmission Date: 20050727
  Serious: Yes (Other)
  Sender: FDA-Public Use
  Company Number: 0500004EN0010P

PATIENT
  Sex: Female

DRUGS (1)
  1. ADAGEN [Suspect]
     Indication: COMBINED IMMUNODEFICIENCY
     Dates: start: 20030401

REACTIONS (2)
  - DRUG LEVEL INCREASED [None]
  - LYMPHOCYTE COUNT DECREASED [None]
